FAERS Safety Report 8462703 (Version 5)
Quarter: 2015Q2

REPORT INFORMATION
  Report Type: Spontaneous
  Country: FR (occurrence: FR)
  Receive Date: 20120316
  Receipt Date: 20150423
  Transmission Date: 20150821
  Serious: Yes (Other)
  Sender: FDA-Public Use
  Company Number: FR-JNJFOC-20120304525

PATIENT

DRUGS (6)
  1. INFLIXIMAB, RECOMBINANT [Suspect]
     Active Substance: INFLIXIMAB
     Indication: PSORIATIC ARTHROPATHY
     Route: 042
  2. INFLIXIMAB, RECOMBINANT [Suspect]
     Active Substance: INFLIXIMAB
     Indication: ANKYLOSING SPONDYLITIS
     Route: 042
  3. INFLIXIMAB, RECOMBINANT [Suspect]
     Active Substance: INFLIXIMAB
     Indication: RHEUMATOID ARTHRITIS
     Route: 042
  4. INFLIXIMAB, RECOMBINANT [Suspect]
     Active Substance: INFLIXIMAB
     Indication: JUVENILE IDIOPATHIC ARTHRITIS
     Route: 042
  5. INFLIXIMAB, RECOMBINANT [Suspect]
     Active Substance: INFLIXIMAB
     Indication: COLITIS ULCERATIVE
     Route: 042
  6. INFLIXIMAB, RECOMBINANT [Suspect]
     Active Substance: INFLIXIMAB
     Indication: CROHN^S DISEASE
     Route: 042

REACTIONS (18)
  - Infusion related reaction [Unknown]
  - Asthma [Unknown]
  - Hypertension [Unknown]
  - Rash [Unknown]
  - Malaise [Unknown]
  - Hepatocellular injury [Unknown]
  - Oedema [Unknown]
  - Tachycardia [Unknown]
  - Neutropenia [Unknown]
  - Drug ineffective [Unknown]
  - Infection [Unknown]
  - Product use issue [Unknown]
  - Bronchospasm [Unknown]
  - Eczema [Unknown]
  - Erythema [Unknown]
  - Flushing [Unknown]
  - Neoplasm [Unknown]
  - Headache [Unknown]
